FAERS Safety Report 10793054 (Version 1)
Quarter: 2015Q1

REPORT INFORMATION
  Report Type: Spontaneous
  Country: US (occurrence: None)
  Receive Date: 20150212
  Receipt Date: 20150212
  Transmission Date: 20150721
  Serious: Yes (Other)
  Sender: FDA-Public Use
  Company Number: None

PATIENT
  Age: 76 Year
  Sex: Female

DRUGS (1)
  1. ENBREL [Suspect]
     Active Substance: ETANERCEPT
     Dosage: QWEEK INJECTABLE
     Dates: start: 20140121, end: 20140303

REACTIONS (2)
  - Myalgia [None]
  - Muscle disorder [None]

NARRATIVE: CASE EVENT DATE: 20150210
